FAERS Safety Report 15149459 (Version 2)
Quarter: 2018Q3

REPORT INFORMATION
  Report Type: Spontaneous
  Country: US (occurrence: US)
  Receive Date: 20180716
  Receipt Date: 20180905
  Transmission Date: 20181010
  Serious: No
  Sender: FDA-Public Use
  Company Number: US-ALKERMES INC.-ALK-2018-003645

PATIENT
  Age: 26 Year
  Sex: Male

DRUGS (5)
  1. ABILIFY [Suspect]
     Active Substance: ARIPIPRAZOLE
     Indication: SCHIZOPHRENIA
     Route: 065
  2. ARISTADA [Suspect]
     Active Substance: ARIPIPRAZOLE LAUROXIL
     Indication: SCHIZOPHRENIA
     Route: 030
  3. NAVANE [Suspect]
     Active Substance: THIOTHIXENE
     Indication: SCHIZOPHRENIA
     Route: 065
  4. HALDOL [Suspect]
     Active Substance: HALOPERIDOL
     Indication: SCHIZOPHRENIA
     Route: 065
  5. ABILIFY MAINTENA [Suspect]
     Active Substance: ARIPIPRAZOLE
     Indication: SCHIZOPHRENIA
     Route: 065

REACTIONS (13)
  - Drug ineffective [Unknown]
  - Cognitive disorder [Unknown]
  - Emotional disorder [Unknown]
  - Personal relationship issue [Unknown]
  - Abdominal discomfort [Unknown]
  - Social avoidant behaviour [Unknown]
  - Hostility [Unknown]
  - Treatment noncompliance [Unknown]
  - Suspiciousness [Unknown]
  - Abnormal behaviour [Unknown]
  - Delusion [Unknown]
  - Hallucination [Unknown]
  - Agitation [Unknown]
